FAERS Safety Report 4335927-2 (Version None)
Quarter: 2004Q2

REPORT INFORMATION
  Report Type: 
  Country: None (occurrence: None)
  Receive Date: 20040406
  Receipt Date: 20040325
  Transmission Date: 20050107
  Serious: Yes (Death, Hospitalization, Other)
  Sender: FDA-Public Use
  Company Number: JP-SHR-04-023276

PATIENT
  Age: 51 Year
  Sex: Male

DRUGS (1)
  1. FLUDARA [Suspect]
     Dosage: 35 MG, CYCLE X5D, INTRAVENOUS
     Route: 042

REACTIONS (10)
  - B-CELL LYMPHOMA [None]
  - DISEASE PROGRESSION [None]
  - EPSTEIN-BARR VIRUS INFECTION [None]
  - HISTIOCYTOSIS HAEMATOPHAGIC [None]
  - INTERSTITIAL LUNG DISEASE [None]
  - PANCYTOPENIA [None]
  - PNEUMOCYSTIS CARINII PNEUMONIA [None]
  - PNEUMONIA CYTOMEGALOVIRAL [None]
  - STEM CELL TRANSPLANT [None]
  - WHITE BLOOD CELL COUNT INCREASED [None]
